FAERS Safety Report 4898166-2 (Version None)
Quarter: 2006Q1

REPORT INFORMATION
  Report Type: 
  Country: None (occurrence: None)
  Receive Date: 20060127
  Receipt Date: 20060111
  Transmission Date: 20060701
  Serious: Yes (Life-Threatening, Hospitalization)
  Sender: FDA-Public Use
  Company Number: DSA_27648_2006

PATIENT
  Age: 88 Year
  Sex: Female

DRUGS (3)
  1. VASOTEC RPD [Suspect]
     Indication: BLOOD PRESSURE INCREASED
     Dosage: 1.25 MG ONCE
     Dates: start: 20060111, end: 20060111
  2. ANTIBIOTICS [Concomitant]
  3. MORPHINE [Concomitant]

REACTIONS (8)
  - ASPIRATION [None]
  - COMA [None]
  - GASTROINTESTINAL DISORDER [None]
  - MEMORY IMPAIRMENT [None]
  - RESPIRATORY DEPRESSION [None]
  - SEPSIS [None]
  - VOMITING [None]
  - WHITE BLOOD CELL COUNT INCREASED [None]
